FAERS Safety Report 23129047 (Version 1)
Quarter: 2023Q4

REPORT INFORMATION
  Report Type: Other
  Country: EG (occurrence: EG)
  Receive Date: 20231031
  Receipt Date: 20231031
  Transmission Date: 20240110
  Serious: Yes (Other)
  Sender: FDA-Public Use
  Company Number: EG-002147023-NVSC2023EG226860

PATIENT
  Age: 65 Year
  Sex: Female

DRUGS (5)
  1. LUCENTIS [Suspect]
     Active Substance: RANIBIZUMAB
     Indication: Diabetic retinal oedema
     Dosage: 0.5 DOSAGE FORM, ON THE LEFT EYE (1/2 VIAL AS PER REPORTER)
     Route: 031
     Dates: start: 20220621, end: 20231004
  2. LUCENTIS [Suspect]
     Active Substance: RANIBIZUMAB
     Dosage: 0.5 DOSAGE FORM, ON THE RIGHT EYE (1/2 VIAL AS PER REPORTER)
     Route: 031
     Dates: start: 20231006, end: 20231006
  3. CALCIUM [Concomitant]
     Active Substance: CALCIUM
     Indication: Vitamin supplementation
     Dosage: 1 DOSAGE FORM, QD
     Dates: start: 2020
  4. CHOLECALCIFEROL [Concomitant]
     Active Substance: CHOLECALCIFEROL
     Indication: Vitamin supplementation
     Dosage: 1 DOSAGE FORM, QD
     Dates: start: 2020
  5. OMEGA 3 [Concomitant]
     Active Substance: CAPSAICIN
     Indication: Vitamin supplementation
     Dosage: 1 DOSAGE FORM, QD
     Dates: start: 2020

REACTIONS (5)
  - Neuropathy peripheral [Recovering/Resolving]
  - Macular oedema [Unknown]
  - Skin discolouration [Not Recovered/Not Resolved]
  - Vision blurred [Not Recovered/Not Resolved]
  - Drug ineffective [Unknown]

NARRATIVE: CASE EVENT DATE: 20230101
